FAERS Safety Report 25591157 (Version 1)
Quarter: 2025Q3

REPORT INFORMATION
  Report Type: Spontaneous
  Country: US (occurrence: US)
  Receive Date: 20250722
  Receipt Date: 20250722
  Transmission Date: 20251020
  Serious: Yes (Other)
  Sender: ALEXION PHARMACEUTICALS
  Company Number: US-ASTRAZENECA-202507GLO012393US

PATIENT
  Sex: Female

DRUGS (11)
  1. NEXIUM [Suspect]
     Active Substance: ESOMEPRAZOLE MAGNESIUM
  2. FENTANYL [Concomitant]
     Active Substance: FENTANYL
  3. GLYCOPYRROLATE [Concomitant]
     Active Substance: GLYCOPYRROLATE
  4. ONDANSETRON [Concomitant]
     Active Substance: ONDANSETRON
  5. PROPOFOL [Concomitant]
     Active Substance: PROPOFOL
  6. ATORVASTATIN [Concomitant]
     Active Substance: ATORVASTATIN
  7. COENZYME Q10 [Concomitant]
     Active Substance: DIETARY SUPPLEMENT\UBIDECARENONE
  8. LORATADINE [Concomitant]
     Active Substance: LORATADINE
  9. PANTOPRAZOLE [Concomitant]
     Active Substance: PANTOPRAZOLE
  10. XARELTO [Concomitant]
     Active Substance: RIVAROXABAN
  11. METOPROLOL SUCCINATE [Concomitant]
     Active Substance: METOPROLOL SUCCINATE

REACTIONS (1)
  - Gastric cancer [Unknown]
